FAERS Safety Report 5465071-2 (Version None)
Quarter: 2007Q3

REPORT INFORMATION
  Report Type: 
  Country: None (occurrence: None)
  Receive Date: 20070820
  Receipt Date: 20070515
  Transmission Date: 20080115
  Serious: No
  Sender: FDA-Public Use
  Company Number: TPA2007A01072

PATIENT
  Age: 58 Year
  Sex: Female
  Weight: 72.5755 kg

DRUGS (10)
  1. ROZEREM [Suspect]
     Dosage: PER ORAL
     Route: 048
  2. AMBIEN [Concomitant]
  3. WELLBUTRIN [Concomitant]
  4. LEXAPRO [Concomitant]
  5. GABAPENTIN [Concomitant]
  6. FOSAMAX [Concomitant]
  7. BENTYL [Concomitant]
  8. FOLIC ACID [Concomitant]
  9. CALCIUM (CALCIUM) [Concomitant]
  10. MULTIVITAMIN [Concomitant]

REACTIONS (1)
  - DRUG INEFFECTIVE [None]
